FAERS Safety Report 18605078 (Version 2)
Quarter: 2021Q2

REPORT INFORMATION
  Report Type: Spontaneous
  Country: JP (occurrence: JP)
  Receive Date: 20201211
  Receipt Date: 20210428
  Transmission Date: 20210717
  Serious: Yes (Hospitalization)
  Sender: FDA-Public Use
  Company Number: JP-GLAXOSMITHKLINE-JP2020242784

PATIENT
  Age: 82 Year
  Sex: Male

DRUGS (2)
  1. CHLORMADINONE [Interacting]
     Active Substance: CHLORMADINONE
     Indication: BENIGN PROSTATIC HYPERPLASIA
     Dosage: UNK
  2. AVOLVE [Suspect]
     Active Substance: DUTASTERIDE
     Indication: BENIGN PROSTATIC HYPERPLASIA
     Dosage: 0.5 MG, QD
     Route: 048
     Dates: start: 20200316

REACTIONS (2)
  - Dyspnoea [Unknown]
  - Drug interaction [Unknown]
